FAERS Safety Report 20346737 (Version 1)
Quarter: 2022Q1

REPORT INFORMATION
  Report Type: Spontaneous
  Country: US (occurrence: None)
  Receive Date: 20220115
  Receipt Date: 20220115
  Transmission Date: 20220423
  Serious: Yes (Disabling)
  Sender: FDA-Public Use
  Company Number: None

PATIENT
  Age: 26 Year
  Sex: Female
  Weight: 56.25 kg

DRUGS (1)
  1. HEATHER [Suspect]
     Active Substance: NORETHINDRONE
     Indication: Polycystic ovaries
     Dosage: QUANTITY: 28 TABLETS
     Route: 048
     Dates: start: 20210301

REACTIONS (2)
  - Polymenorrhoea [None]
  - Depressive symptom [None]

NARRATIVE: CASE EVENT DATE: 20210421
